FAERS Safety Report 24742215 (Version 1)
Quarter: 2024Q4

REPORT INFORMATION
  Report Type: Report from Study
  Country: KR (occurrence: KR)
  Receive Date: 20241217
  Receipt Date: 20241217
  Transmission Date: 20250115
  Serious: Yes (Hospitalization, Other)
  Sender: SUNOVION
  Company Number: KR-ZBN-001-PMS-S46062-01

PATIENT

DRUGS (13)
  1. ESLICARBAZEPINE ACETATE [Suspect]
     Active Substance: ESLICARBAZEPINE ACETATE
     Indication: Epilepsy
     Dosage: 400 MILLIGRAM, 1X / DAY
     Route: 048
     Dates: start: 20230103, end: 20230206
  2. ESLICARBAZEPINE ACETATE [Suspect]
     Active Substance: ESLICARBAZEPINE ACETATE
     Dosage: 800 MILLIGRAM, 1X / DAY
     Route: 048
     Dates: start: 20230207
  3. ZOLOFT [Concomitant]
     Active Substance: SERTRALINE HYDROCHLORIDE
     Indication: Depression
     Dosage: 1 DOSAGE FORM, 1X / DAY
     Route: 048
     Dates: start: 20220509
  4. LAMICTAL [Concomitant]
     Active Substance: LAMOTRIGINE
     Indication: Epilepsy
     Dosage: 2 DOSAGE FORM, 0.5 D
     Route: 048
     Dates: start: 20220411
  5. VALPROATE SODIUM [Concomitant]
     Active Substance: VALPROATE SODIUM
     Indication: Epilepsy
     Dosage: 1 DOSAGE FORM, 1X / DAY
     Route: 048
     Dates: start: 20230123, end: 20230126
  6. VALPROATE SODIUM [Concomitant]
     Active Substance: VALPROATE SODIUM
     Indication: Epilepsy
     Dosage: 1 DOSAGE FORM, 1X / DAY
     Route: 048
     Dates: start: 20230127
  7. Inno.n 0.9% sodium chloride [Concomitant]
     Dosage: 0.5 DOSAGE FORM, 1X / DAY
     Route: 042
     Dates: start: 20230123, end: 20230123
  8. VALPROATE SODIUM [Concomitant]
     Active Substance: VALPROATE SODIUM
     Indication: Epilepsy
     Dosage: 2 DOSAGE FORM, 1X / DAY
     Route: 042
     Dates: start: 20230123, end: 20230123
  9. SODIUM CHLORIDE [Concomitant]
     Active Substance: SODIUM CHLORIDE
     Dosage: 1 DOSAGE FORM, 1X / DAY
     Route: 042
     Dates: start: 20230123, end: 20230123
  10. VITAMINS [Concomitant]
     Active Substance: VITAMINS
     Indication: Vitamin supplementation
     Dosage: 1 DOSAGE FORM, 1X / DAY
     Route: 042
     Dates: start: 20230124, end: 20230125
  11. Inno.n 0.9% sodium chloride [Concomitant]
     Dosage: 1 DOSAGE FORM, 1X / DAY
     Route: 042
     Dates: start: 20230124, end: 20230125
  12. Inno.n 5% dextrose [Concomitant]
     Indication: Fluid replacement
     Dosage: 1 DOSAGE FORM, 1X / DAY
     Route: 065
     Dates: start: 20230123, end: 20230123
  13. LEVITAM [Concomitant]
     Indication: Fluid replacement
     Dosage: 1 DOSAGE FORM, DAILY
     Route: 042
     Dates: start: 20230428

REACTIONS (5)
  - Epilepsy [Recovered/Resolved]
  - Eye contusion [Recovered/Resolved]
  - Dizziness [Recovered/Resolved]
  - Underdose [Recovered/Resolved]
  - Drug dose titration not performed [Recovered/Resolved]

NARRATIVE: CASE EVENT DATE: 20230101
